FAERS Safety Report 10232686 (Version 1)
Quarter: 2014Q2

REPORT INFORMATION
  Report Type: Spontaneous
  Country: US (occurrence: US)
  Receive Date: 20140612
  Receipt Date: 20140612
  Transmission Date: 20141212
  Serious: Yes (Other)
  Sender: FDA-Public Use
  Company Number: PHEH2014US011573

PATIENT
  Sex: Female

DRUGS (5)
  1. DIOVAN [Suspect]
     Dosage: 80 MG, UNK
  2. LASIX [Concomitant]
     Dosage: UNK UKN, UNK
  3. TOPROL [Concomitant]
     Dosage: UNK UKN, UNK
  4. XARELTO [Concomitant]
     Dosage: UNK UKN, UNK
  5. PROBIOTIC [Concomitant]
     Dosage: UNK UKN, UNK

REACTIONS (9)
  - Pulmonary embolism [Unknown]
  - Cough [Unknown]
  - Haemorrhage [Unknown]
  - Ascites [Unknown]
  - Abdominal distension [Unknown]
  - Abdominal hernia [Unknown]
  - Dyspnoea [Unknown]
  - Swelling [Unknown]
  - Cardiac disorder [Unknown]
